FAERS Safety Report 19559478 (Version 1)
Quarter: 2021Q3

REPORT INFORMATION
  Report Type: Spontaneous
  Country: US (occurrence: US)
  Receive Date: 20210715
  Receipt Date: 20210715
  Transmission Date: 20211014
  Serious: Yes (Hospitalization)
  Sender: FDA-Public Use
  Company Number: None

PATIENT
  Age: 37 Year
  Sex: Female
  Weight: 111 kg

DRUGS (4)
  1. DEXAMETHASONE 10 MG IV PUSH [Concomitant]
     Dates: start: 20210711, end: 20210711
  2. CASIRIVIMAB 600 MG + IMDEVIMAB 600 MG [Suspect]
     Active Substance: CASIRIVIMAB\IMDEVIMAB
     Dosage: ?          OTHER FREQUENCY:ONCE;?
     Route: 042
  3. ALBUTEROL 2.5MG/3ML INHALATION [Concomitant]
     Dates: start: 20210711, end: 20210711
  4. ACETAMINOPHEN 2000 MG ORALLY [Concomitant]
     Dates: start: 20210711, end: 20210711

REACTIONS (2)
  - Condition aggravated [None]
  - Oxygen saturation decreased [None]

NARRATIVE: CASE EVENT DATE: 20210711
